FAERS Safety Report 22340858 (Version 1)
Quarter: 2023Q2

REPORT INFORMATION
  Report Type: Spontaneous
  Country: US (occurrence: US)
  Receive Date: 20230518
  Receipt Date: 20230518
  Transmission Date: 20230722
  Serious: Yes (Other)
  Sender: FDA-Public Use
  Company Number: US-PFIZER INC-PV202300086584

PATIENT
  Age: 78 Year
  Sex: Male

DRUGS (1)
  1. BRAFTOVI [Suspect]
     Active Substance: ENCORAFENIB
     Indication: Neoplasm malignant
     Dosage: 75 MG
     Dates: start: 20230316

REACTIONS (3)
  - Neuropathy peripheral [Recovering/Resolving]
  - Alopecia [Unknown]
  - Memory impairment [Unknown]
